FAERS Safety Report 7265130-8 (Version None)
Quarter: 2011Q1

REPORT INFORMATION
  Report Type: 
  Country: None (occurrence: None)
  Receive Date: 20110131
  Receipt Date: 20110121
  Transmission Date: 20110831
  Serious: Yes (Hospitalization)
  Sender: FDA-Public Use
  Company Number: BR-MEDIMMUNE-MEDI-0012319

PATIENT
  Sex: Male

DRUGS (6)
  1. FOLIC ACID [Concomitant]
     Indication: VITAMIN SUPPLEMENTATION
     Route: 048
  2. OMEPRAZOLE [Concomitant]
  3. SYNAGIS [Suspect]
  4. GEVITAL [Concomitant]
     Indication: VITAMIN SUPPLEMENTATION
     Route: 048
  5. BROMOPRIDE [Concomitant]
  6. SYNAGIS [Suspect]
     Route: 030
     Dates: start: 20100630, end: 20100827

REACTIONS (2)
  - PNEUMONIA [None]
  - INFLUENZA [None]
